FAERS Safety Report 9297852 (Version 3)
Quarter: 2014Q1

REPORT INFORMATION
  Report Type: Spontaneous
  Country: US (occurrence: US)
  Receive Date: 20130520
  Receipt Date: 20140319
  Transmission Date: 20141002
  Serious: Yes (Hospitalization)
  Sender: FDA-Public Use
  Company Number: US-PFIZER INC-2013152116

PATIENT
  Age: 53 Year
  Sex: Female

DRUGS (3)
  1. XALKORI [Suspect]
     Indication: LUNG NEOPLASM MALIGNANT
     Dosage: 250 MG, 2X/DAY
     Route: 048
     Dates: start: 201203
  2. XALKORI [Suspect]
     Dosage: 250 MG, 1X/DAY
     Dates: start: 20120310
  3. XALKORI [Suspect]
     Dosage: UNK
     Dates: start: 201303

REACTIONS (4)
  - Gastrointestinal oedema [Unknown]
  - Oesophagitis [Unknown]
  - Disease progression [Unknown]
  - Lung neoplasm malignant [Unknown]
